FAERS Safety Report 4538258-0 (Version None)
Quarter: 2004Q4

REPORT INFORMATION
  Report Type: 
  Country: None (occurrence: None)
  Receive Date: 20041223
  Receipt Date: 20041223
  Transmission Date: 20050328
  Serious: No
  Sender: FDA-Public Use
  Company Number: None

PATIENT
  Sex: Male
  Weight: 80.91 kg

DRUGS (1)
  1. RITUXIMAB  10 MG/ML  IN 50 ML  VIAL  GENETECH [Suspect]
     Indication: LYMPHOMA
     Dosage: 795  MG INTRAVENOUS
     Route: 042
     Dates: start: 20041025, end: 20041025

REACTIONS (5)
  - CHILLS [None]
  - HYPOTENSION [None]
  - INFUSION RELATED REACTION [None]
  - PYREXIA [None]
  - THERAPEUTIC RESPONSE DECREASED [None]
